FAERS Safety Report 18693275 (Version 5)
Quarter: 2021Q1

REPORT INFORMATION
  Report Type: Report from Study
  Country: IL (occurrence: IL)
  Receive Date: 20210104
  Receipt Date: 20210310
  Transmission Date: 20210419
  Serious: Yes (Other)
  Sender: FDA-Public Use
  Company Number: IL-JNJFOC-20201253893

PATIENT
  Age: 47 Year
  Sex: Male

DRUGS (2)
  1. STELARA [Suspect]
     Active Substance: USTEKINUMAB
     Route: 058
     Dates: start: 202101
  2. STELARA [Suspect]
     Active Substance: USTEKINUMAB
     Indication: CROHN^S DISEASE
     Route: 058
     Dates: start: 20200128

REACTIONS (5)
  - Off label use [Unknown]
  - Crohn^s disease [Not Recovered/Not Resolved]
  - Drug ineffective [Unknown]
  - Product use issue [Unknown]
  - Abscess limb [Not Recovered/Not Resolved]

NARRATIVE: CASE EVENT DATE: 2020
